FAERS Safety Report 18669468 (Version 1)
Quarter: 2020Q4

REPORT INFORMATION
  Report Type: Spontaneous
  Country: US (occurrence: US)
  Receive Date: 20201224
  Receipt Date: 20201224
  Transmission Date: 20210114
  Serious: No
  Sender: FDA-Public Use
  Company Number: None

PATIENT
  Age: 35 Year
  Sex: Female

DRUGS (1)
  1. ICATIBANT ACETATE SYR [Suspect]
     Active Substance: ICATIBANT ACETATE
     Indication: COMPLEMENT DEFICIENCY DISEASE
     Route: 058
     Dates: start: 202006

REACTIONS (2)
  - Tongue disorder [None]
  - Lip disorder [None]

NARRATIVE: CASE EVENT DATE: 20201201
